FAERS Safety Report 7392144-X (Version None)
Quarter: 2011Q2

REPORT INFORMATION
  Report Type: 
  Country: None (occurrence: None)
  Receive Date: 20110404
  Receipt Date: 20110329
  Transmission Date: 20111010
  Serious: Yes (Death)
  Sender: FDA-Public Use
  Company Number: A0917155A

PATIENT
  Age: 48 Year
  Sex: Female

DRUGS (4)
  1. THORAZINE [Concomitant]
  2. CITALOPRAM HYDROBROMIDE [Concomitant]
  3. LAMICTAL [Suspect]
     Indication: BIPOLAR DISORDER
     Dosage: 150TAB PER DAY
     Route: 048
     Dates: start: 20050101, end: 20110301
  4. KLONOPIN [Concomitant]

REACTIONS (2)
  - COMPLETED SUICIDE [None]
  - INTENTIONAL OVERDOSE [None]
